FAERS Safety Report 8959620 (Version 1)
Quarter: 2012Q4

REPORT INFORMATION
  Report Type: 
  Country: SK (occurrence: SK)
  Receive Date: 20121211
  Receipt Date: 20121211
  Transmission Date: 20130627
  Serious: Yes (Death, Life-Threatening, Hospitalization)
  Sender: FDA-Public Use
  Company Number: PHHY2012SK113952

PATIENT
  Sex: Male

DRUGS (1)
  1. EXTAVIA [Suspect]

REACTIONS (2)
  - Death [Fatal]
  - Circulatory collapse [Not Recovered/Not Resolved]
